FAERS Safety Report 14475101 (Version 2)
Quarter: 2018Q1

REPORT INFORMATION
  Report Type: Spontaneous
  Country: GR (occurrence: GR)
  Receive Date: 20180201
  Receipt Date: 20180226
  Transmission Date: 20180509
  Serious: Yes (Hospitalization)
  Sender: FDA-Public Use
  Company Number: GR-BIOMARINAP-GR-2018-116902

PATIENT
  Age: 30 Year
  Sex: Male
  Weight: 80 kg

DRUGS (1)
  1. VIMIZIM [Suspect]
     Active Substance: ELOSULFASE ALFA
     Indication: MUCOPOLYSACCHARIDOSIS IV
     Dosage: 160 MG, QW
     Route: 042
     Dates: start: 20180109, end: 20180127

REACTIONS (2)
  - Testicular pain [Recovered/Resolved]
  - Testicular torsion [Recovered/Resolved]

NARRATIVE: CASE EVENT DATE: 20180126
